FAERS Safety Report 16083157 (Version 1)
Quarter: 2019Q1

REPORT INFORMATION
  Report Type: Spontaneous
  Country: US (occurrence: US)
  Receive Date: 20190214
  Receipt Date: 20190214
  Transmission Date: 20190418
  Serious: No
  Sender: FDA-Public Use
  Company Number: None

PATIENT
  Age: 33 Year
  Sex: Male

DRUGS (1)
  1. ORKAMBI [Suspect]
     Active Substance: IVACAFTOR\LUMACAFTOR
     Dates: start: 201610

REACTIONS (4)
  - Nephrolithiasis [None]
  - Hypertension [None]
  - Glycosylated haemoglobin increased [None]
  - Stress at work [None]

NARRATIVE: CASE EVENT DATE: 20190214
